FAERS Safety Report 10932623 (Version 1)
Quarter: 2015Q1

REPORT INFORMATION
  Report Type: Spontaneous
  Country: HK (occurrence: HK)
  Receive Date: 20150320
  Receipt Date: 20150320
  Transmission Date: 20150721
  Serious: Yes (Other)
  Sender: FDA-Public Use
  Company Number: HK-CIPLA LTD.-2015HK02456

PATIENT

DRUGS (1)
  1. FINASTERIDE. [Suspect]
     Active Substance: FINASTERIDE
     Indication: ANDROGENETIC ALOPECIA
     Dosage: 1.0 MG, QD

REACTIONS (2)
  - Cataract subcapsular [Recovered/Resolved]
  - Floppy iris syndrome [Recovered/Resolved]

NARRATIVE: CASE EVENT DATE: 201102
